FAERS Safety Report 7668620-9 (Version None)
Quarter: 2011Q3

REPORT INFORMATION
  Report Type: 
  Country: None (occurrence: None)
  Receive Date: 20110808
  Receipt Date: 20110727
  Transmission Date: 20111222
  Serious: Yes (Other)
  Sender: FDA-Public Use
  Company Number: US-AMGEN-USASP2011038257

PATIENT
  Sex: Female

DRUGS (1)
  1. ENBREL [Suspect]
     Indication: RHEUMATOID ARTHRITIS
     Dosage: 50 MG, QWK
     Dates: start: 20080601

REACTIONS (12)
  - WEIGHT DECREASED [None]
  - DRY MOUTH [None]
  - COUGH [None]
  - PLATELET COUNT DECREASED [None]
  - FATIGUE [None]
  - ABSCESS ORAL [None]
  - DIZZINESS [None]
  - INCREASED TENDENCY TO BRUISE [None]
  - MOOD SWINGS [None]
  - DRY EYE [None]
  - ABDOMINAL PAIN UPPER [None]
  - MALAISE [None]
